FAERS Safety Report 9176769 (Version 3)
Quarter: 2013Q2

REPORT INFORMATION
  Report Type: Spontaneous
  Country: FR (occurrence: FR)
  Receive Date: 20130321
  Receipt Date: 20130408
  Transmission Date: 20140414
  Serious: No
  Sender: FDA-Public Use
  Company Number: PHHY2013FR025211

PATIENT
  Age: 28 Year
  Sex: Female

DRUGS (8)
  1. TOBI PODHALER [Suspect]
     Indication: PSEUDOMONAS INFECTION
     Dosage: 4 DF, BID
     Dates: start: 20121001, end: 20121003
  2. TOBI PODHALER [Suspect]
     Dosage: 4 DF, BID (EVERY 2 MONTHS)
     Dates: start: 201302
  3. TOBI PODHALER [Suspect]
     Dosage: UNK
     Dates: start: 201303
  4. TOBI [Suspect]
     Dosage: UNK
  5. SINGULAIR [Concomitant]
  6. RHINOCORT//BUDESONIDE [Concomitant]
  7. ZITHROMAX [Concomitant]
  8. EUROBIOL [Concomitant]

REACTIONS (2)
  - Aphthous stomatitis [Recovered/Resolved]
  - Dry mouth [Recovered/Resolved]
